FAERS Safety Report 9555236 (Version 1)
Quarter: 2013Q3

REPORT INFORMATION
  Report Type: Spontaneous
  Country: US (occurrence: None)
  Receive Date: 20130805
  Receipt Date: 20130805
  Transmission Date: 20140515
  Serious: Yes (Other)
  Sender: FDA-Public Use
  Company Number: OPCR20130236

PATIENT
  Sex: Male

DRUGS (2)
  1. OPANA ER [Suspect]
     Indication: BACK PAIN
     Route: 048
     Dates: start: 2012
  2. OPANA ER 20MG (OPANA ER 20 MG)  (OXYMORPHONE HYDROCHLORIDE) (20 MILLIGRAM, TABLETS) (OXYMORPHONE HYDROCHLORIDE) [Concomitant]

REACTIONS (4)
  - Drug abuse [None]
  - Feeling jittery [None]
  - Withdrawal syndrome [None]
  - Amnesia [None]
